FAERS Safety Report 17212210 (Version 1)
Quarter: 2019Q4

REPORT INFORMATION
  Report Type: Spontaneous
  Country: SE (occurrence: SE)
  Receive Date: 20191230
  Receipt Date: 20191230
  Transmission Date: 20200122
  Serious: Yes (Hospitalization)
  Sender: FDA-Public Use
  Company Number: SE-TEVA-2019-SE-1158665

PATIENT
  Sex: Female

DRUGS (2)
  1. PROPAVAN [Suspect]
     Active Substance: PROPIOMAZINE
     Dosage: 1.5 G PROPAVAN
     Route: 048
     Dates: start: 20180416, end: 20180416
  2. OXASCAND [Suspect]
     Active Substance: OXAZEPAM
     Dosage: 24 ST - 120 MG
     Route: 048
     Dates: start: 20180416, end: 20180416

REACTIONS (5)
  - Fatigue [Unknown]
  - Mydriasis [Unknown]
  - Loss of consciousness [Unknown]
  - Intentional self-injury [Unknown]
  - Intentional overdose [Unknown]

NARRATIVE: CASE EVENT DATE: 20180416
